FAERS Safety Report 20741355 (Version 4)
Quarter: 2022Q4

REPORT INFORMATION
  Report Type: Report from Study
  Country: JP (occurrence: JP)
  Receive Date: 20220422
  Receipt Date: 20221026
  Transmission Date: 20230113
  Serious: Yes (Life-Threatening, Hospitalization, Other)
  Sender: FDA-Public Use
  Company Number: JP-CELGENE-JPN-20210809055

PATIENT
  Age: 79 Year
  Sex: Female
  Weight: 60.4 kg

DRUGS (22)
  1. ISTODAX [Suspect]
     Active Substance: ROMIDEPSIN
     Indication: Peripheral T-cell lymphoma unspecified
     Dosage: FREQUENCY TEXT: UNKNOWN
     Route: 041
     Dates: start: 20210409, end: 20210409
  2. ISTODAX [Suspect]
     Active Substance: ROMIDEPSIN
     Dosage: FREQUENCY TEXT: UNKNOWN
     Route: 041
     Dates: start: 20210420, end: 20210420
  3. ISTODAX [Suspect]
     Active Substance: ROMIDEPSIN
     Dosage: FREQUENCY TEXT: UNKNOWN
     Route: 041
     Dates: start: 20210428, end: 20210428
  4. ISTODAX [Suspect]
     Active Substance: ROMIDEPSIN
     Dosage: FREQUENCY TEXT: UNKNOWN
     Route: 041
     Dates: start: 20210513, end: 20210513
  5. ISTODAX [Suspect]
     Active Substance: ROMIDEPSIN
     Dosage: FREQUENCY TEXT: UNKNOWN
     Route: 041
     Dates: start: 20210519, end: 20210519
  6. ISTODAX [Suspect]
     Active Substance: ROMIDEPSIN
     Dosage: FREQUENCY TEXT: UNKNOWN
     Route: 041
     Dates: start: 20210602, end: 20210602
  7. ISTODAX [Suspect]
     Active Substance: ROMIDEPSIN
     Route: 041
     Dates: start: 20210609, end: 20210609
  8. ISTODAX [Suspect]
     Active Substance: ROMIDEPSIN
     Route: 041
     Dates: start: 20210616, end: 20210616
  9. ISTODAX [Suspect]
     Active Substance: ROMIDEPSIN
     Route: 041
     Dates: start: 20210630, end: 20210630
  10. ISTODAX [Suspect]
     Active Substance: ROMIDEPSIN
     Route: 041
     Dates: start: 20210707, end: 20210707
  11. ISTODAX [Suspect]
     Active Substance: ROMIDEPSIN
     Route: 041
     Dates: start: 20210714, end: 20210714
  12. ISTODAX [Suspect]
     Active Substance: ROMIDEPSIN
     Route: 041
     Dates: start: 20210728, end: 20210728
  13. ISTODAX [Suspect]
     Active Substance: ROMIDEPSIN
     Route: 041
     Dates: start: 20210806, end: 20210806
  14. ISTODAX [Suspect]
     Active Substance: ROMIDEPSIN
     Route: 041
     Dates: start: 20210825, end: 20210825
  15. ISTODAX [Suspect]
     Active Substance: ROMIDEPSIN
     Route: 041
     Dates: start: 20210908, end: 20210908
  16. ISTODAX [Suspect]
     Active Substance: ROMIDEPSIN
     Route: 041
     Dates: start: 20210922, end: 20210922
  17. ISTODAX [Suspect]
     Active Substance: ROMIDEPSIN
     Route: 041
     Dates: start: 20211006, end: 20211006
  18. BISOPROLOL FUMARATE [Suspect]
     Active Substance: BISOPROLOL FUMARATE
     Indication: Cardiac failure congestive
     Dosage: FREQUENCY TEXT: UNKNOWN?UNKNOWN
     Route: 065
     Dates: start: 202104, end: 202104
  19. POTASSIUM ASPARTATE [Suspect]
     Active Substance: POTASSIUM ASPARTATE
     Indication: Electrolyte substitution therapy
     Dosage: FREQUENCY TEXT: UNKNOWN?UNKNOWN
     Route: 065
     Dates: end: 202104
  20. SULFAMETHOXAZOLE AND TRIMETHOPRIM [Concomitant]
     Active Substance: SULFAMETHOXAZOLE\TRIMETHOPRIM
     Indication: Infection prophylaxis
     Dosage: UNIT DOSE : 1 TABLET
     Route: 048
     Dates: start: 20210215
  21. FLUCONAZOLE [Concomitant]
     Active Substance: FLUCONAZOLE
     Indication: Infection prophylaxis
     Route: 048
     Dates: start: 20210215
  22. VALACYCLOVIR HYDROCHLORIDE [Concomitant]
     Active Substance: VALACYCLOVIR HYDROCHLORIDE
     Indication: Infection prophylaxis
     Route: 048
     Dates: start: 20210519, end: 20210524

REACTIONS (8)
  - Cardiac failure congestive [Recovered/Resolved]
  - Atrial fibrillation [Recovered/Resolved]
  - Hyperkalaemia [Recovered/Resolved]
  - Bradycardia [Recovered/Resolved]
  - Campylobacter infection [Recovered/Resolved]
  - Diarrhoea [Recovered/Resolved]
  - White blood cell count decreased [Recovered/Resolved]
  - Decreased appetite [Recovered/Resolved]

NARRATIVE: CASE EVENT DATE: 20210411
